FAERS Safety Report 4789418-5 (Version None)
Quarter: 2005Q4

REPORT INFORMATION
  Report Type: 
  Country: None (occurrence: None)
  Receive Date: 20051006
  Receipt Date: 20050811
  Transmission Date: 20060501
  Serious: Yes (Hospitalization, Other)
  Sender: FDA-Public Use
  Company Number: GB-ABBOTT-05P-167-0308267-00

PATIENT
  Age: 58 Year
  Sex: Female
  Weight: 57.6 kg

DRUGS (6)
  1. HUMIRA [Suspect]
     Indication: RHEUMATOID ARTHRITIS
     Route: 058
     Dates: start: 20050201, end: 20050701
  2. HUMIRA [Suspect]
     Route: 058
     Dates: end: 20050901
  3. LEFLUNOMIDE [Concomitant]
     Indication: RHEUMATOID ARTHRITIS
     Route: 048
     Dates: start: 20000301
  4. SODIUM AUROTHIOMALATE [Concomitant]
     Indication: RHEUMATOID ARTHRITIS
     Route: 030
     Dates: start: 19940101
  5. DICLOFENAC SODIUM [Concomitant]
     Indication: INFLAMMATION
     Route: 048
  6. HYDROXYCHLOROQUINE SULFATE [Concomitant]
     Indication: RHEUMATOID ARTHRITIS
     Route: 048
     Dates: start: 20011001

REACTIONS (3)
  - DRUG INEFFECTIVE [None]
  - HYPERTENSION [None]
  - KNEE ARTHROPLASTY [None]
